FAERS Safety Report 25769648 (Version 1)
Quarter: 2025Q3

REPORT INFORMATION
  Report Type: Spontaneous
  Country: US (occurrence: US)
  Receive Date: 20250906
  Receipt Date: 20250906
  Transmission Date: 20251021
  Serious: Yes (Hospitalization, Other)
  Sender: UNITED THERAPEUTICS
  Company Number: US-UNITED THERAPEUTICS-UNT-2025-029654

PATIENT
  Age: 66 Year
  Sex: Male

DRUGS (16)
  1. TYVASO DPI [Suspect]
     Active Substance: TREPROSTINIL
     Indication: Pulmonary arterial hypertension
     Dosage: 80 ?G (48 ?G + 32 ?G), QID
  2. TYVASO DPI [Suspect]
     Active Substance: TREPROSTINIL
     Indication: Atrial septal defect
  3. TYVASO DPI [Suspect]
     Active Substance: TREPROSTINIL
     Indication: Right-to-left cardiac shunt
  4. TYVASO DPI [Suspect]
     Active Substance: TREPROSTINIL
     Indication: Pulmonary arterial hypertension
  5. TYVASO DPI [Suspect]
     Active Substance: TREPROSTINIL
     Indication: Atrial septal defect
  6. TYVASO DPI [Suspect]
     Active Substance: TREPROSTINIL
     Indication: Right-to-left cardiac shunt
  7. TYVASO DPI [Suspect]
     Active Substance: TREPROSTINIL
     Indication: Pulmonary arterial hypertension
  8. TYVASO DPI [Suspect]
     Active Substance: TREPROSTINIL
     Indication: Atrial septal defect
  9. TYVASO DPI [Suspect]
     Active Substance: TREPROSTINIL
     Indication: Right-to-left cardiac shunt
  10. SILDENAFIL [Suspect]
     Active Substance: SILDENAFIL
     Indication: Pulmonary arterial hypertension
  11. SILDENAFIL [Suspect]
     Active Substance: SILDENAFIL
     Indication: Atrial septal defect
  12. SILDENAFIL [Suspect]
     Active Substance: SILDENAFIL
     Indication: Right-to-left cardiac shunt
  13. ADEMPAS [Suspect]
     Active Substance: RIOCIGUAT
     Indication: Product used for unknown indication
  14. BOSENTAN [Concomitant]
     Active Substance: BOSENTAN
     Indication: Pulmonary arterial hypertension
  15. BOSENTAN [Concomitant]
     Active Substance: BOSENTAN
     Indication: Atrial septal defect
  16. BOSENTAN [Concomitant]
     Active Substance: BOSENTAN
     Indication: Right-to-left cardiac shunt

REACTIONS (5)
  - Gastrointestinal candidiasis [Recovering/Resolving]
  - Oesophageal candidiasis [Unknown]
  - Reactive gastropathy [Recovering/Resolving]
  - Weight decreased [Unknown]
  - Condition aggravated [Unknown]

NARRATIVE: CASE EVENT DATE: 20241201
